FAERS Safety Report 9405028 (Version 1)
Quarter: 2013Q3

REPORT INFORMATION
  Report Type: Spontaneous
  Country: US (occurrence: US)
  Receive Date: 20130717
  Receipt Date: 20130717
  Transmission Date: 20140515
  Serious: Yes (Other)
  Sender: FDA-Public Use
  Company Number: US-BRISTOL-MYERS SQUIBB COMPANY-18809053

PATIENT
  Sex: Male

DRUGS (1)
  1. YERVOY [Suspect]
     Dates: start: 20130328

REACTIONS (2)
  - Neurological symptom [Unknown]
  - Liver function test abnormal [Unknown]
